FAERS Safety Report 4812929-0 (Version None)
Quarter: 2005Q4

REPORT INFORMATION
  Report Type: 
  Country: None (occurrence: None)
  Receive Date: 20051028
  Receipt Date: 20050517
  Transmission Date: 20060501
  Serious: No
  Sender: FDA-Public Use
  Company Number: US-GLAXOSMITHKLINE-A0558957A

PATIENT
  Age: 20 Year
  Sex: Male

DRUGS (3)
  1. ADVAIR DISKUS 100/50 [Suspect]
     Indication: CHRONIC OBSTRUCTIVE PULMONARY DISEASE
     Route: 055
     Dates: start: 20040801, end: 20050516
  2. ZITHROMAX [Concomitant]
  3. ALBUTEROL [Concomitant]

REACTIONS (6)
  - ANGER [None]
  - COUGH [None]
  - DYSPHONIA [None]
  - IRRITABILITY [None]
  - PERSONALITY CHANGE [None]
  - RASH [None]
